FAERS Safety Report 7514600-3 (Version None)
Quarter: 2011Q2

REPORT INFORMATION
  Report Type: 
  Country: None (occurrence: None)
  Receive Date: 20110520
  Receipt Date: 20110509
  Transmission Date: 20111010
  Serious: Yes (Death, Other)
  Sender: FDA-Public Use
  Company Number: 20109177

PATIENT
  Age: 41 Year
  Sex: Male

DRUGS (1)
  1. LIORESAL [Suspect]
     Indication: MUSCLE SPASTICITY
     Dosage: SEE IMAGE, DAILY, INTRATHECAL
     Route: 037

REACTIONS (13)
  - CONDITION AGGRAVATED [None]
  - DRUG WITHDRAWAL SYNDROME [None]
  - UNRESPONSIVE TO STIMULI [None]
  - SEPSIS [None]
  - HYPERTHERMIA [None]
  - DEVICE MALFUNCTION [None]
  - BURNING SENSATION [None]
  - MUSCLE SPASMS [None]
  - BUNDLE BRANCH BLOCK LEFT [None]
  - PAIN [None]
  - TACHYCARDIA [None]
  - BRADYCARDIA [None]
  - CARDIO-RESPIRATORY ARREST [None]
